FAERS Safety Report 4398896-5 (Version None)
Quarter: 2004Q2

REPORT INFORMATION
  Report Type: 
  Country: None (occurrence: None)
  Receive Date: 20040621
  Receipt Date: 20031121
  Transmission Date: 20050107
  Serious: Yes (Death)
  Sender: FDA-Public Use
  Company Number: USA-2003-0007101

PATIENT
  Age: 47 Year
  Sex: Female
  Weight: 49.4 kg

DRUGS (5)
  1. OXYCONTIN [Suspect]
     Indication: PAIN
  2. METHADONE HCL [Suspect]
  3. DOXYLAMINE (DOXYLAMINE) [Suspect]
  4. DIPHENHYDRAMINE HCL [Suspect]
  5. CAFFEINE (CAFFEINE) [Suspect]

REACTIONS (2)
  - ACCIDENTAL OVERDOSE [None]
  - MULTIPLE DRUG OVERDOSE [None]
